FAERS Safety Report 4862738-1 (Version None)
Quarter: 2005Q4

REPORT INFORMATION
  Report Type: 
  Country: None (occurrence: None)
  Receive Date: 20051221
  Receipt Date: 20051213
  Transmission Date: 20060501
  Serious: Yes (Hospitalization)
  Sender: FDA-Public Use
  Company Number: US-MERCK-0512USA02021

PATIENT
  Age: 54 Year
  Sex: Female

DRUGS (1)
  1. VIOXX [Suspect]
     Indication: PAIN MANAGEMENT
     Route: 048

REACTIONS (4)
  - CARDIAC DISORDER [None]
  - DYSPNOEA [None]
  - EXTRASYSTOLES [None]
  - SILENT MYOCARDIAL INFARCTION [None]
